FAERS Safety Report 7850773-0 (Version None)
Quarter: 2011Q4

REPORT INFORMATION
  Report Type: 
  Country: None (occurrence: None)
  Receive Date: 20111021
  Receipt Date: 20111008
  Transmission Date: 20120403
  Serious: Yes (Hospitalization)
  Sender: FDA-Public Use
  Company Number: TIF2011A00129

PATIENT
  Age: 67 Year
  Sex: Male

DRUGS (1)
  1. ACTOS [Suspect]
     Dates: start: 20090201

REACTIONS (1)
  - BLADDER CANCER [None]
